FAERS Safety Report 5166401-1 (Version None)
Quarter: 2006Q4

REPORT INFORMATION
  Report Type: 
  Country: None (occurrence: None)
  Receive Date: 20061129
  Receipt Date: 20061120
  Transmission Date: 20070319
  Serious: Yes (Death, Life-Threatening)
  Sender: FDA-Public Use
  Company Number: 2006BI013999

PATIENT
  Age: 42 Year
  Sex: Female

DRUGS (2)
  1. AVONEX [Suspect]
     Indication: MULTIPLE SCLEROSIS
     Dosage: 7.5 UG; QW; IM
     Route: 030
     Dates: start: 20060118
  2. ALBUTEROL [Concomitant]

REACTIONS (2)
  - ASTHMA [None]
  - CARDIAC ARREST [None]
